FAERS Safety Report 8803180 (Version 4)
Quarter: 2015Q1

REPORT INFORMATION
  Report Type: Spontaneous
  Country: US (occurrence: US)
  Receive Date: 20120924
  Receipt Date: 20150218
  Transmission Date: 20150721
  Serious: No
  Sender: FDA-Public Use
  Company Number: US-009507513-1209USA009028

PATIENT
  Sex: Male
  Weight: 81 kg

DRUGS (7)
  1. PROPECIA [Suspect]
     Active Substance: FINASTERIDE
     Indication: ANDROGENETIC ALOPECIA
     Dosage: 1 MG, QD
     Route: 048
     Dates: start: 20100823, end: 20111202
  2. PROPECIA [Suspect]
     Active Substance: FINASTERIDE
     Indication: ALOPECIA
  3. CLARITIN [Concomitant]
     Active Substance: LORATADINE
     Indication: PRODUCT USED FOR UNKNOWN INDICATION
     Dosage: 10 MG, QD
     Route: 048
  4. FLONASE [Concomitant]
     Active Substance: FLUTICASONE PROPIONATE
     Indication: PRODUCT USED FOR UNKNOWN INDICATION
     Dosage: 1 SPRAY EACH NOSTRIL QD PRN
     Route: 045
  5. ZYRTEC [Concomitant]
     Active Substance: CETIRIZINE HYDROCHLORIDE
     Indication: SEASONAL ALLERGY
     Dosage: 10 MG, QD PRN
  6. PROPECIA [Suspect]
     Active Substance: FINASTERIDE
     Indication: ALOPECIA AREATA
  7. MENS ROGAINE UNSCENTED FORMULA [Concomitant]
     Active Substance: MINOXIDIL
     Indication: ALOPECIA

REACTIONS (11)
  - Cognitive disorder [Unknown]
  - Tobacco user [Unknown]
  - Hypercholesterolaemia [Unknown]
  - Libido decreased [Unknown]
  - Stress [Unknown]
  - Fatigue [Unknown]
  - Depression [Unknown]
  - Erectile dysfunction [Recovering/Resolving]
  - Pharyngitis [Unknown]
  - Sexual dysfunction [Unknown]
  - Cough [Unknown]

NARRATIVE: CASE EVENT DATE: 2010
